FAERS Safety Report 23971198 (Version 1)
Quarter: 2024Q2

REPORT INFORMATION
  Report Type: Spontaneous
  Country: US (occurrence: US)
  Receive Date: 20240613
  Receipt Date: 20240613
  Transmission Date: 20240716
  Serious: Yes (Hospitalization)
  Sender: FDA-Public Use
  Company Number: US-Oxford Pharmaceuticals, LLC-2158088

PATIENT
  Age: 16 Year
  Sex: Female

DRUGS (1)
  1. LORAZEPAM [Suspect]
     Active Substance: LORAZEPAM
     Indication: Catatonia
     Route: 048

REACTIONS (4)
  - Adverse event [Unknown]
  - Incorrect dose administered [Unknown]
  - Off label use [Unknown]
  - Condition aggravated [Unknown]
